FAERS Safety Report 24849687 (Version 1)
Quarter: 2025Q1

REPORT INFORMATION
  Report Type: Report from Study
  Country: US (occurrence: US)
  Receive Date: 20250116
  Receipt Date: 20250116
  Transmission Date: 20250408
  Serious: Yes (Hospitalization)
  Sender: ROCHE
  Company Number: US-ROCHE-10000178227

PATIENT
  Age: 27 Year
  Sex: Female
  Weight: 52.16 kg

DRUGS (5)
  1. OCREVUS [Suspect]
     Active Substance: OCRELIZUMAB
     Indication: Relapsing multiple sclerosis
     Dosage: 300MG/10ML
     Route: 042
     Dates: start: 202307
  2. BACLOFEN [Concomitant]
     Active Substance: BACLOFEN
     Indication: Multiple sclerosis
     Route: 048
     Dates: start: 20250102
  3. LEXAPRO [Concomitant]
     Active Substance: ESCITALOPRAM OXALATE
     Indication: Anxiety
     Route: 048
     Dates: start: 2018
  4. GABAPENTIN [Concomitant]
     Active Substance: GABAPENTIN
     Indication: Pain
     Dosage: ONE IN MORNING AND ONE AT NIGHT
     Route: 048
     Dates: start: 202305
  5. MYSOLINE [Concomitant]
     Active Substance: PRIMIDONE
     Indication: Tremor
     Dosage: 2 IN THE MORNING AND 3 AT NIGHT
     Route: 048
     Dates: start: 202405

REACTIONS (10)
  - Illness [Recovered/Resolved]
  - Haematoma [Recovered/Resolved]
  - Fall [Unknown]
  - Infection [Recovered/Resolved]
  - Gait disturbance [Not Recovered/Not Resolved]
  - Incontinence [Not Recovered/Not Resolved]
  - Tremor [Not Recovered/Not Resolved]
  - Tardive dyskinesia [Recovered/Resolved]
  - Anxiety [Not Recovered/Not Resolved]
  - Neuralgia [Not Recovered/Not Resolved]

NARRATIVE: CASE EVENT DATE: 20240301
